FAERS Safety Report 4695038-3 (Version None)
Quarter: 2005Q2

REPORT INFORMATION
  Report Type: 
  Country: None (occurrence: None)
  Receive Date: 20050617
  Receipt Date: 20050613
  Transmission Date: 20051028
  Serious: Yes (Life-Threatening)
  Sender: FDA-Public Use
  Company Number: 2005-05-1460

PATIENT
  Age: 3 Year
  Sex: Female

DRUGS (3)
  1. NEOCLARITYN (DESLORATADINE) TABLETS   ^CLARINEX^ [Suspect]
     Dosage: 1.25MG ORAL
     Route: 048
     Dates: start: 20050517, end: 20050522
  2. WARFARIN [Suspect]
     Indication: COAGULOPATHY
     Dosage: ORAL
     Route: 048
  3. DAKTARIN [Concomitant]

REACTIONS (2)
  - DRUG INTERACTION [None]
  - INTERNATIONAL NORMALISED RATIO INCREASED [None]
